FAERS Safety Report 5338428-8 (Version None)
Quarter: 2007Q2

REPORT INFORMATION
  Report Type: 
  Country: None (occurrence: None)
  Receive Date: 20070405
  Receipt Date: 20061110
  Transmission Date: 20071010
  Serious: No
  Sender: FDA-Public Use
  Company Number: US200611001592

PATIENT
  Age: 36 Year
  Sex: Male

DRUGS (3)
  1. CYMBALTA [Suspect]
     Dosage: ORAL
     Route: 048
  2. ALLEGRA [Concomitant]
  3. VICODIN [Concomitant]

REACTIONS (1)
  - AMPHETAMINES POSITIVE [None]
